FAERS Safety Report 19777626 (Version 6)
Quarter: 2022Q1

REPORT INFORMATION
  Report Type: Report from Study
  Country: IT (occurrence: IT)
  Receive Date: 20210902
  Receipt Date: 20220211
  Transmission Date: 20220423
  Serious: Yes (Hospitalization)
  Sender: FDA-Public Use
  Company Number: IT-SECURA BIO, INC.-2021-SECUR-IT003356

PATIENT

DRUGS (47)
  1. DUVELISIB [Suspect]
     Active Substance: DUVELISIB
     Indication: Non-Hodgkin^s lymphoma
     Dosage: 25 MG, BID (C1 ARM A)
     Route: 048
     Dates: start: 20210511, end: 20210721
  2. LETROZOLE [Concomitant]
     Active Substance: LETROZOLE
     Indication: Breast cancer
     Dosage: 1 DF, DAILY
     Route: 048
     Dates: start: 20190219
  3. ATORVASTATIN [Concomitant]
     Active Substance: ATORVASTATIN
     Indication: Arteriosclerosis coronary artery
     Dosage: 1 DF, DAILY
     Route: 048
  4. ASPIRIN [Concomitant]
     Active Substance: ASPIRIN
     Indication: Arteriosclerosis coronary artery
     Dosage: 100 MG, DAILY
     Route: 048
  5. SIMBRINZA [Concomitant]
     Active Substance: BRIMONIDINE TARTRATE\BRINZOLAMIDE
     Indication: Macular hole
     Dosage: 13 DROPS DAILY
  6. BISOPROLOL [Concomitant]
     Active Substance: BISOPROLOL
     Indication: Hypertension
     Dosage: 1 DF, DAILY
     Route: 048
  7. LERCANIDIPINE [Concomitant]
     Active Substance: LERCANIDIPINE
     Indication: Hypertension
     Dosage: 1 DF, DAILY
     Route: 048
     Dates: end: 20210607
  8. LORAZEPAM [Concomitant]
     Active Substance: LORAZEPAM
     Indication: Depression
     Dosage: 13 DROPS DAILY
     Route: 048
  9. LANSOPRAZOLE [Concomitant]
     Active Substance: LANSOPRAZOLE
     Indication: Gastrooesophageal reflux disease
     Dosage: 1 DF, DAILY
     Route: 048
  10. AMITRIPTYLINE HYDROCHLORIDE [Concomitant]
     Active Substance: AMITRIPTYLINE HYDROCHLORIDE
     Indication: Depression
     Dosage: 13 DROPS DAILY
     Route: 048
  11. KEFIBIOS [Concomitant]
     Indication: Gastrointestinal disorder prophylaxis
     Dosage: 5 GTT, DAILY
     Route: 048
     Dates: start: 20210511, end: 20210720
  12. LOPERAMIDE HYDROCHLORIDE [Concomitant]
     Active Substance: LOPERAMIDE HYDROCHLORIDE
     Indication: Diarrhoea
     Dosage: 1 DF, DAILY
     Route: 048
     Dates: start: 20210511, end: 20210803
  13. ALLOPURINOL [Concomitant]
     Active Substance: ALLOPURINOL
     Indication: Prophylaxis
     Dosage: 300 MG, TID
     Route: 048
     Dates: start: 20210607, end: 20210803
  14. FILGRASTIM [Concomitant]
     Active Substance: FILGRASTIM
     Indication: Neutrophil count decreased
     Dosage: 5 UG/KG, DAILY
     Route: 058
     Dates: start: 20210614, end: 20210617
  15. TORSEMIDE [Concomitant]
     Active Substance: TORSEMIDE
     Indication: Hypertension
     Dosage: 5 MG, EVERY OTHER DAY
     Route: 048
  16. CALCIUM CARBONATE\CHOLECALCIFEROL [Concomitant]
     Active Substance: CALCIUM CARBONATE\CHOLECALCIFEROL
     Indication: Supplementation therapy
     Dosage: 6 TIMES A WEEK
     Route: 048
     Dates: start: 20210607, end: 20210803
  17. CHOLECALCIFEROL [Concomitant]
     Active Substance: CHOLECALCIFEROL
     Indication: Supplementation therapy
     Dosage: 40 DROPS
     Route: 048
     Dates: start: 20210607
  18. ZOLPIDEM TARTRATE [Concomitant]
     Active Substance: ZOLPIDEM TARTRATE
     Indication: Depression
     Dosage: 10 MG, DAILY
     Route: 048
     Dates: start: 20210622, end: 20210803
  19. ZOLPIDEM TARTRATE [Concomitant]
     Active Substance: ZOLPIDEM TARTRATE
     Dosage: 10 MG, DAILY
     Route: 048
     Dates: start: 20210806
  20. ACETAMINOPHEN\CODEINE PHOSPHATE [Concomitant]
     Active Substance: ACETAMINOPHEN\CODEINE PHOSPHATE
     Indication: Pain
     Dosage: 530 MG, AS NEEDED
     Route: 048
     Dates: start: 20210607, end: 20210803
  21. LEVOFLOXACIN [Concomitant]
     Active Substance: LEVOFLOXACIN
     Indication: Pyrexia
     Dosage: 500 MG
     Route: 048
  22. LEVOFLOXACIN [Concomitant]
     Active Substance: LEVOFLOXACIN
     Indication: Infection prophylaxis
  23. GRANULOCYTE COLONY-STIMULATING FACTOR NOS [Concomitant]
     Active Substance: GRANULOCYTE COLONY-STIMULATING FACTOR NOS
     Indication: Prophylaxis
     Dosage: 1 DF, DAILY
     Route: 058
     Dates: start: 20210702, end: 20210704
  24. GRANULOCYTE COLONY-STIMULATING FACTOR NOS [Concomitant]
     Active Substance: GRANULOCYTE COLONY-STIMULATING FACTOR NOS
     Dosage: 1 DF, DAILY
     Route: 058
     Dates: start: 20210709, end: 20210723
  25. CETIRIZINE HYDROCHLORIDE [Concomitant]
     Active Substance: CETIRIZINE HYDROCHLORIDE
     Indication: Erythema
     Dosage: 10 MG
     Route: 048
     Dates: start: 20210722, end: 20210803
  26. PREDNISONE [Concomitant]
     Active Substance: PREDNISONE
     Indication: Febrile neutropenia
     Dosage: 25 MG
     Route: 048
     Dates: start: 20210724, end: 20210801
  27. PREDNISONE [Concomitant]
     Active Substance: PREDNISONE
     Dosage: 12.5 MG, DAILY
     Route: 048
     Dates: start: 20210802, end: 20210804
  28. MICONAZOLE [Concomitant]
     Active Substance: MICONAZOLE
     Indication: Prophylaxis
     Dosage: UNK, TID
     Route: 048
     Dates: start: 20210804, end: 20210805
  29. VALACYCLOVIR HYDROCHLORIDE [Concomitant]
     Active Substance: VALACYCLOVIR HYDROCHLORIDE
     Indication: Infection prophylaxis
     Dosage: 500 MG, DAILY
     Route: 048
     Dates: start: 20210806, end: 20210812
  30. VALACYCLOVIR HYDROCHLORIDE [Concomitant]
     Active Substance: VALACYCLOVIR HYDROCHLORIDE
     Indication: Infection prophylaxis
     Dosage: 1000 MG, DAILY
     Route: 048
     Dates: start: 20210813
  31. FUROSEMIDE [Concomitant]
     Active Substance: FUROSEMIDE
     Indication: Prophylaxis
     Dosage: 20 MG, DAILY
     Route: 042
     Dates: start: 20210806
  32. BACTRIM [Concomitant]
     Active Substance: SULFAMETHOXAZOLE\TRIMETHOPRIM
     Indication: Infection prophylaxis
     Dosage: 1 DF, BID
     Route: 048
     Dates: start: 20210511, end: 20210803
  33. BACTRIM [Concomitant]
     Active Substance: SULFAMETHOXAZOLE\TRIMETHOPRIM
     Dosage: 960 MG, BID
     Route: 048
     Dates: start: 20210806
  34. TRIMETON [Concomitant]
     Active Substance: CHLORPHENIRAMINE MALEATE
     Indication: Erythema
     Dosage: 10 MG, DAILY
     Route: 042
  35. ALBUMIN HUMAN [Concomitant]
     Active Substance: ALBUMIN HUMAN
     Indication: Supplementation therapy
     Dosage: 50 ML, DAILY
     Route: 042
     Dates: start: 20210806, end: 20210812
  36. CANRENOATE POTASSIUM [Concomitant]
     Active Substance: CANRENOATE POTASSIUM
     Indication: Mineral supplementation
     Dosage: 200 MG, DAILY
     Route: 042
     Dates: start: 20210807
  37. CALCIUM GLUCONATE [Concomitant]
     Active Substance: CALCIUM GLUCONATE
     Indication: Mineral supplementation
     Dosage: 2 DF, DAILY
     Route: 042
     Dates: start: 20210807, end: 20210812
  38. POTASSIUM CHLORIDE [Concomitant]
     Active Substance: POTASSIUM CHLORIDE
     Indication: Mineral supplementation
     Dosage: 600 MG, TID
     Route: 048
     Dates: start: 20210807
  39. MAGNESIUM SULFATE [Concomitant]
     Active Substance: MAGNESIUM SULFATE
     Indication: Mineral supplementation
     Dosage: 2 DF, DAILY
     Route: 042
     Dates: start: 20210809, end: 20210813
  40. ASCORBIC ACID\MINERALS\VITAMINS [Concomitant]
     Active Substance: ASCORBIC ACID\MINERALS\VITAMINS
     Indication: Vitamin supplementation
     Dosage: 1 DF, DAILY
     Route: 048
     Dates: start: 20210810, end: 20210813
  41. CALCIUM CARBONATE [Concomitant]
     Active Substance: CALCIUM CARBONATE
     Indication: Mineral supplementation
     Dosage: 1 DF, DAILY
     Route: 048
     Dates: start: 20210812
  42. RETACRIT [Concomitant]
     Active Substance: EPOETIN ALFA-EPBX
     Indication: Anaemia prophylaxis
     Dosage: 30000 IU
     Route: 058
     Dates: start: 20210813
  43. NYSTATIN [Concomitant]
     Active Substance: NYSTATIN
     Indication: Prophylaxis
     Dosage: UNK
     Route: 048
     Dates: start: 20210812
  44. POLYETHYLENE GLYCOLS [Concomitant]
     Active Substance: POLYETHYLENE GLYCOLS
     Indication: Constipation prophylaxis
     Dosage: 1 DF, DAILY
     Route: 048
     Dates: start: 20210814, end: 20210816
  45. CITALOPRAM [Concomitant]
     Active Substance: CITALOPRAM HYDROBROMIDE
     Indication: Depression
     Dosage: 10 MG, DAILY
     Route: 048
     Dates: start: 20210814
  46. ENOXAPARIN SODIUM [Concomitant]
     Active Substance: ENOXAPARIN SODIUM
     Indication: Arteriosclerosis coronary artery
     Dosage: 40 MG, DAILY
     Route: 058
     Dates: start: 20210816
  47. SODIUM GLYCEROPHOSPHATE [Concomitant]
     Active Substance: SODIUM GLYCEROPHOSPHATE
     Indication: Supplementation therapy
     Dosage: 216 MG, DAILY
     Route: 042
     Dates: start: 20210812, end: 20210818

REACTIONS (2)
  - Pneumonia [Recovered/Resolved]
  - Febrile neutropenia [Recovered/Resolved]

NARRATIVE: CASE EVENT DATE: 20210803
